FAERS Safety Report 5203653-3 (Version None)
Quarter: 2007Q1

REPORT INFORMATION
  Report Type: 
  Country: None (occurrence: None)
  Receive Date: 20070105
  Receipt Date: 20061220
  Transmission Date: 20070707
  Serious: Yes (Hospitalization)
  Sender: FDA-Public Use
  Company Number: 234326

PATIENT
  Age: 62 Year
  Sex: Male
  Weight: 89.8 kg

DRUGS (7)
  1. AVASTIN [Suspect]
     Indication: COLORECTAL CANCER METASTATIC
     Dosage: 687 MG, Q3W, INTRAVENOUS
     Route: 042
     Dates: start: 20061106
  2. CAPECITABINE (CAPECITABINE) [Suspect]
     Indication: COLORECTAL CANCER METASTATIC
     Dosage: 850 MG/M2, BID, ORAL
     Route: 048
     Dates: start: 20061106
  3. OXALIPLATIN [Suspect]
     Indication: COLORECTAL CANCER METASTATIC
     Dosage: 273 MG, Q3W, INTRAVENOUS
     Route: 042
     Dates: start: 20061106
  4. TOPROL-XL [Concomitant]
  5. LIPITOR [Concomitant]
  6. DIOVAN [Concomitant]
  7. MULTIVITAMIN AND IRON (IRON NOS, MULTIVITAMINS NOS) [Concomitant]

REACTIONS (10)
  - ANOREXIA [None]
  - BLOOD PRESSURE DECREASED [None]
  - BLOOD PRESSURE SYSTOLIC DECREASED [None]
  - CARDIOMEGALY [None]
  - DEEP VEIN THROMBOSIS [None]
  - HEART RATE INCREASED [None]
  - HEART RATE IRREGULAR [None]
  - PAIN IN EXTREMITY [None]
  - PULMONARY EMBOLISM [None]
  - SYNCOPE [None]
